FAERS Safety Report 24675585 (Version 3)
Quarter: 2024Q4

REPORT INFORMATION
  Report Type: Spontaneous
  Country: US (occurrence: US)
  Receive Date: 20241128
  Receipt Date: 20241223
  Transmission Date: 20250115
  Serious: No
  Sender: ABBVIE
  Company Number: US-ABBVIE-6015754

PATIENT
  Age: 63 Year
  Sex: Male

DRUGS (2)
  1. SYNTHROID [Suspect]
     Active Substance: LEVOTHYROXINE SODIUM
     Indication: Product used for unknown indication
     Dosage: FORM STRENGTH: 75 MICROGRAM?50MCG FOR 6 DAYS AND ON THE 7TH DAY TAKE SYNTHROID 75MCG.
     Route: 048
     Dates: start: 2004
  2. SYNTHROID [Suspect]
     Active Substance: LEVOTHYROXINE SODIUM
     Indication: Product used for unknown indication
     Dosage: FREQUENCY TEXT: 1 TABLET ONCE A DAY FOR 6 DAYS?FORM STRENGTH: 50 MICROGRAM
     Route: 048
     Dates: start: 2004

REACTIONS (11)
  - Hepatic pain [Recovered/Resolved]
  - Illness [Unknown]
  - Diarrhoea [Unknown]
  - Feeling abnormal [Recovered/Resolved]
  - Nausea [Recovered/Resolved]
  - Pulse abnormal [Recovered/Resolved]
  - Tremor [Unknown]
  - Illness [Recovered/Resolved]
  - Product odour abnormal [Unknown]
  - Heart rate abnormal [Unknown]
  - Feeling abnormal [Unknown]

NARRATIVE: CASE EVENT DATE: 20240101
